FAERS Safety Report 9392341 (Version 1)
Quarter: 2013Q3

REPORT INFORMATION
  Report Type: Spontaneous
  Country: US (occurrence: None)
  Receive Date: 20130708
  Receipt Date: 20130708
  Transmission Date: 20140515
  Serious: Yes (Hospitalization)
  Sender: FDA-Public Use
  Company Number: None

PATIENT
  Age: 67 Year
  Sex: Male
  Weight: 100.9 kg

DRUGS (2)
  1. INSULIN [Suspect]
     Indication: DIABETES MELLITUS
     Dosage: 6 UNITS BID SQ
     Route: 058
     Dates: start: 20130504, end: 20130515
  2. INSULIN [Suspect]
     Indication: DIABETES MELLITUS
     Dosage: 8 UNITS OTHER SQ
     Route: 058
     Dates: start: 20130504, end: 20130515

REACTIONS (2)
  - Hypoglycaemia [None]
  - Confusional state [None]
